FAERS Safety Report 7470570-8 (Version None)
Quarter: 2011Q2

REPORT INFORMATION
  Report Type: 
  Country: None (occurrence: None)
  Receive Date: 20110510
  Receipt Date: 20110503
  Transmission Date: 20111010
  Serious: Yes (Other)
  Sender: FDA-Public Use
  Company Number: US-TEVA-279900USA

PATIENT
  Age: 78 Year
  Sex: Female

DRUGS (4)
  1. WARFARIN SODIUM [Suspect]
  2. LATANOPROST [Suspect]
     Indication: OPEN ANGLE GLAUCOMA
     Dosage: UNKNOWN AT NIGHT IN ONE EYE
     Dates: start: 20101101
  3. TIMOLOL MALEATE [Suspect]
  4. TRAVOPROST [Suspect]

REACTIONS (2)
  - INTRAOCULAR PRESSURE INCREASED [None]
  - VISION BLURRED [None]
